FAERS Safety Report 5852800-9 (Version None)
Quarter: 2008Q3

REPORT INFORMATION
  Report Type: 
  Country: None (occurrence: None)
  Receive Date: 20080821
  Receipt Date: 20080818
  Transmission Date: 20090109
  Serious: Yes (Life-Threatening)
  Sender: FDA-Public Use
  Company Number: GB-MERCK-0808GBR00070

PATIENT
  Sex: Male

DRUGS (2)
  1. ZOCOR [Suspect]
     Route: 065
  2. CYCLOSPORINE [Suspect]
     Route: 065

REACTIONS (2)
  - DRUG INTERACTION [None]
  - RHABDOMYOLYSIS [None]
